FAERS Safety Report 8920250 (Version 2)
Quarter: 2013Q1

REPORT INFORMATION
  Report Type: Report from Study
  Country: US (occurrence: US)
  Receive Date: 20121122
  Receipt Date: 20130312
  Transmission Date: 20140127
  Serious: Yes (Hospitalization)
  Sender: FDA-Public Use
  Company Number: US-ROCHE-1154060

PATIENT
  Age: 54 Year
  Sex: Female
  Weight: 89.8 kg

DRUGS (8)
  1. TRASTUZUMAB [Suspect]
     Indication: BREAST CANCER
     Dosage: LOADING DOSE
     Route: 042
     Dates: start: 20120926
  2. TRASTUZUMAB [Suspect]
     Dosage: MAINTENANCE DOSE,DATE OF LAST DOSE PRIOR TO SAE 17/OCT/2012
     Route: 042
  3. DOCETAXEL [Suspect]
     Indication: BREAST CANCER
     Dosage: DATE OF LAST DOSE PRIOR TO SAE 17/OCT/2012
     Route: 042
     Dates: start: 20120926
  4. ASACOL [Concomitant]
     Route: 065
     Dates: start: 20030506
  5. ZOFRAN [Concomitant]
     Route: 065
     Dates: start: 20120927
  6. NEUPOGEN [Concomitant]
     Route: 065
     Dates: start: 20121019, end: 20121023
  7. K-TAB [Concomitant]
     Route: 065
     Dates: start: 20121016
  8. PERTUZUMAB [Suspect]
     Indication: BREAST CANCER
     Dosage: DATE OF LAST DOSE PRIOR TO SAE 17/OCT/2012
     Route: 042
     Dates: start: 20120926

REACTIONS (1)
  - Renal failure acute [Recovered/Resolved with Sequelae]
